FAERS Safety Report 6639096-5 (Version None)
Quarter: 2010Q1

REPORT INFORMATION
  Report Type: 
  Country: None (occurrence: None)
  Receive Date: 20100312
  Receipt Date: 20100222
  Transmission Date: 20100710
  Serious: Yes (Other)
  Sender: FDA-Public Use
  Company Number: 008410

PATIENT
  Sex: Female
  Weight: 4.6 kg

DRUGS (3)
  1. VIMPAT [Suspect]
     Dosage: (DOSAGE SCHEME 1-0-1 UNIT DOSE TRANSPLACENTAL), (TRANSMAMMARY)
     Route: 064
  2. LAMOTRIGINE [Concomitant]
  3. RIVOTRIL [Concomitant]

REACTIONS (4)
  - CAESAREAN SECTION [None]
  - DRUG EXPOSURE VIA BREAST MILK [None]
  - MATERNAL DRUGS AFFECTING FOETUS [None]
  - POSTMATURE BABY [None]
